FAERS Safety Report 11070365 (Version 1)
Quarter: 2015Q2

REPORT INFORMATION
  Report Type: Spontaneous
  Country: US (occurrence: US)
  Receive Date: 20150427
  Receipt Date: 20150427
  Transmission Date: 20150821
  Serious: Yes (Other)
  Sender: FDA-Public Use
  Company Number: US-GLAXOSMITHKLINE-US2015054671

PATIENT

DRUGS (2)
  1. NICOTINE. [Suspect]
     Active Substance: NICOTINE
     Indication: PRODUCT USED FOR UNKNOWN INDICATION
     Route: 065
  2. NICOTINE. [Suspect]
     Active Substance: NICOTINE
     Route: 065

REACTIONS (19)
  - Confusional state [Unknown]
  - Tension [Unknown]
  - Irritability [Unknown]
  - Headache [Unknown]
  - Restlessness [Unknown]
  - Asthenia [Unknown]
  - Feeling jittery [Unknown]
  - Palpitations [Unknown]
  - Nervousness [Unknown]
  - Emotional distress [Unknown]
  - Disturbance in attention [Unknown]
  - Fatigue [Unknown]
  - Fear [Unknown]
  - Feeling abnormal [Unknown]
  - Discomfort [Unknown]
  - Hyperhidrosis [Unknown]
  - Dizziness [Unknown]
  - Nausea [Unknown]
  - Salivary hypersecretion [Unknown]
